FAERS Safety Report 5836735-3 (Version None)
Quarter: 2008Q3

REPORT INFORMATION
  Report Type: 
  Country: None (occurrence: None)
  Receive Date: 20080806
  Receipt Date: 20080806
  Transmission Date: 20090109
  Serious: Yes (Hospitalization)
  Sender: FDA-Public Use
  Company Number: None

PATIENT
  Sex: Male
  Weight: 72.5755 kg

DRUGS (5)
  1. OXALIPLATIN [Suspect]
     Indication: RECTAL CANCER
     Dosage: 100 MG/M2 -182 MG- Q21DAYS IV, FIRST CYCLE
     Route: 042
  2. CAPECITABINE 500 MG ROCHE [Suspect]
     Indication: RECTAL CANCER
     Dosage: 2000 MG/M2 -3500 MG/DAY BID ON D1-14 PO, FIRST CYCLE
     Route: 048
  3. DEXAMETHASONE [Concomitant]
  4. PALONOSETRON [Concomitant]
  5. OXALIPLATIN [Concomitant]

REACTIONS (2)
  - CHOLELITHIASIS [None]
  - JAUNDICE [None]
